FAERS Safety Report 14298344 (Version 1)
Quarter: 2017Q4

REPORT INFORMATION
  Report Type: Spontaneous
  Country: US (occurrence: US)
  Receive Date: 20171215
  Receipt Date: 20171215
  Transmission Date: 20180321
  Serious: Yes (Other)
  Sender: FDA-Public Use
  Company Number: None

PATIENT
  Sex: Male
  Weight: 16.2 kg

DRUGS (3)
  1. MONTELUKAST SODIUM. [Suspect]
     Active Substance: MONTELUKAST SODIUM
     Indication: ASTHMA
     Dosage: ?          QUANTITY:1 PACKET;?
     Route: 048
     Dates: start: 20170822, end: 20171202
  2. OTC GENERIC ZYRTEC [Concomitant]
  3. CHILDREN MULTI VITAMIN [Concomitant]

REACTIONS (2)
  - Aggression [None]
  - Mental disorder [None]

NARRATIVE: CASE EVENT DATE: 20170901
